FAERS Safety Report 8021817-0 (Version None)
Quarter: 2011Q4

REPORT INFORMATION
  Report Type: 
  Country: None (occurrence: None)
  Receive Date: 20111229
  Receipt Date: 20111221
  Transmission Date: 20120403
  Serious: Yes (Hospitalization)
  Sender: FDA-Public Use
  Company Number: DSM-2011-01406

PATIENT
  Age: 81 Year
  Sex: Female

DRUGS (2)
  1. RANEXA [Suspect]
     Indication: ANGINA PECTORIS
     Dosage: 750 MG, ORAL
     Route: 048
     Dates: start: 20110626, end: 20110101
  2. OLMESARTAN MEDOXOMIL [Suspect]
     Indication: HYPERTENSION
     Dosage: 40 MG, ORAL
     Route: 048
     Dates: start: 20110626, end: 20110101

REACTIONS (1)
  - SYNCOPE [None]
